FAERS Safety Report 7796681-5 (Version None)
Quarter: 2011Q3

REPORT INFORMATION
  Report Type: 
  Country: None (occurrence: None)
  Receive Date: 20110930
  Receipt Date: 20110920
  Transmission Date: 20111222
  Serious: Yes (Other)
  Sender: FDA-Public Use
  Company Number: 11-001044

PATIENT
  Age: 55 Year
  Sex: Female
  Weight: 51.2 kg

DRUGS (3)
  1. PREMARIN [Concomitant]
  2. VAGIFEM [Concomitant]
  3. ESTRACE [Suspect]
     Indication: HORMONE REPLACEMENT THERAPY
     Dosage: 1 G, BIW, VAGINAL
     Route: 067
     Dates: start: 20110101

REACTIONS (4)
  - VULVOVAGINAL PAIN [None]
  - VAGINAL LESION [None]
  - VAGINAL HAEMORRHAGE [None]
  - VAGINAL DISCHARGE [None]
